FAERS Safety Report 10668567 (Version 2)
Quarter: 2014Q4

REPORT INFORMATION
  Report Type: Report from Study
  Country: US (occurrence: US)
  Receive Date: 20141222
  Receipt Date: 20141222
  Transmission Date: 20150529
  Serious: Yes (Other)
  Sender: FDA-Public Use
  Company Number: US-SA-2014SA109073

PATIENT
  Age: 55 Year
  Sex: Female

DRUGS (1)
  1. AUBAGIO [Suspect]
     Active Substance: TERIFLUNOMIDE
     Indication: MULTIPLE SCLEROSIS RELAPSE
     Route: 048
     Dates: start: 20140805

REACTIONS (6)
  - Burning sensation [Unknown]
  - Viral infection [Unknown]
  - Pain [Recovering/Resolving]
  - Gait disturbance [Unknown]
  - Diarrhoea [Recovering/Resolving]
  - Spastic paralysis [Unknown]
